FAERS Safety Report 4673634-7 (Version None)
Quarter: 2005Q2

REPORT INFORMATION
  Report Type: 
  Country: None (occurrence: None)
  Receive Date: 20050525
  Receipt Date: 20050209
  Transmission Date: 20051028
  Serious: Yes (Other)
  Sender: FDA-Public Use
  Company Number: 2005AP01167

PATIENT
  Age: 67 Year
  Sex: Female

DRUGS (2)
  1. ARIMIDEX [Suspect]
     Indication: BREAST CANCER
     Route: 048
     Dates: start: 20021001, end: 20021101
  2. RADIOTHERAPY [Suspect]
     Dosage: 50 GY IN 25 FRACTIONS
     Dates: start: 20021001, end: 20021101

REACTIONS (3)
  - BRONCHOALVEOLAR LAVAGE ABNORMAL [None]
  - CRYPTOGENIC ORGANIZING PNEUMONIA [None]
  - PNEUMONITIS [None]
